FAERS Safety Report 6466888-8 (Version None)
Quarter: 2009Q4

REPORT INFORMATION
  Report Type: 
  Country: None (occurrence: None)
  Receive Date: 20091202
  Receipt Date: 20091116
  Transmission Date: 20100525
  Serious: No
  Sender: FDA-Public Use
  Company Number: US-B.I. PHARMACEUTICALS,INC./RIDGEFIELD-2009-BP-13371BP

PATIENT
  Age: 61 Year
  Sex: Female

DRUGS (2)
  1. ZANTAC 150 [Suspect]
     Indication: HIATUS HERNIA
     Dosage: 150 MG
     Route: 048
     Dates: start: 20091113, end: 20091114
  2. ZANTAC 150 [Suspect]
     Indication: GASTROOESOPHAGEAL REFLUX DISEASE

REACTIONS (4)
  - ABDOMINAL DISTENSION [None]
  - DYSPHAGIA [None]
  - PRURITUS [None]
  - SENSATION OF FOREIGN BODY [None]
